FAERS Safety Report 12455793 (Version 1)
Quarter: 2016Q2

REPORT INFORMATION
  Report Type: Spontaneous
  Country: US (occurrence: US)
  Receive Date: 20160610
  Receipt Date: 20160610
  Transmission Date: 20160815
  Serious: No
  Sender: FDA-Public Use
  Company Number: US-AMNEAL PHARMACEUTICALS-2015AMN00202

PATIENT
  Age: 66 Year
  Sex: Female
  Weight: 58.96 kg

DRUGS (4)
  1. PRIMIDONE. [Suspect]
     Active Substance: PRIMIDONE
     Indication: FAMILIAL TREMOR
     Dosage: 50 MG, 1X/DAY
  2. PRIMIDONE. [Suspect]
     Active Substance: PRIMIDONE
     Dosage: 25 MG, 1X/DAY
     Dates: start: 201212
  3. HUMIRA (ABBVIE) [Concomitant]
     Indication: RHEUMATOID ARTHRITIS
     Dosage: 40 MG, UNK
     Route: 023
     Dates: start: 20150614
  4. XELJANZ(PFIZER) [Concomitant]
     Indication: RHEUMATOID ARTHRITIS
     Dosage: 5 MG, 2X/DAY
     Dates: start: 201410, end: 201505

REACTIONS (5)
  - Somnolence [Not Recovered/Not Resolved]
  - Lower limb fracture [Not Recovered/Not Resolved]
  - Drug ineffective [Not Recovered/Not Resolved]
  - Knee arthroplasty [Not Recovered/Not Resolved]
  - Urticaria [Recovered/Resolved]

NARRATIVE: CASE EVENT DATE: 201212
